FAERS Safety Report 6828451-6 (Version None)
Quarter: 2010Q3

REPORT INFORMATION
  Report Type: 
  Country: None (occurrence: None)
  Receive Date: 20100709
  Receipt Date: 20070214
  Transmission Date: 20110219
  Serious: No
  Sender: FDA-Public Use
  Company Number: US-PFIZER INC-2007011945

PATIENT
  Sex: Female
  Weight: 80.74 kg

DRUGS (4)
  1. CHANTIX [Suspect]
     Indication: SMOKING CESSATION THERAPY
     Dates: start: 20070101
  2. FLUCONAZOLE [Suspect]
     Indication: FUNGAL INFECTION
     Dates: start: 20070202
  3. CELEBREX [Concomitant]
  4. ULTRAM [Concomitant]

REACTIONS (5)
  - CHEILITIS [None]
  - DRY MOUTH [None]
  - LIP DRY [None]
  - LIP SWELLING [None]
  - VULVOVAGINAL MYCOTIC INFECTION [None]
